FAERS Safety Report 17001906 (Version 1)
Quarter: 2019Q4

REPORT INFORMATION
  Report Type: Report from Study
  Country: CA (occurrence: CA)
  Receive Date: 20191106
  Receipt Date: 20191106
  Transmission Date: 20200122
  Serious: No
  Sender: FDA-Public Use
  Company Number: CA-BEH-2019108899

PATIENT
  Sex: Female

DRUGS (8)
  1. NASACORT [Concomitant]
     Active Substance: TRIAMCINOLONE ACETONIDE
  2. RABEPRAZOLE [Concomitant]
     Active Substance: RABEPRAZOLE
  3. HIZENTRA [Suspect]
     Active Substance: HUMAN IMMUNOGLOBULIN G
     Indication: PRIMARY IMMUNODEFICIENCY SYNDROME
     Dosage: 10 GRAM, QW
     Route: 058
  4. OXEZE [Concomitant]
     Active Substance: FORMOTEROL FUMARATE
  5. FELODIPINE. [Concomitant]
     Active Substance: FELODIPINE
  6. BETALOL [NEBIVOLOL HYDROCHLORIDE] [Concomitant]
  7. SYMBICORT [Concomitant]
     Active Substance: BUDESONIDE\FORMOTEROL FUMARATE DIHYDRATE
  8. CITALOPRAM [Concomitant]
     Active Substance: CITALOPRAM HYDROBROMIDE

REACTIONS (1)
  - Injection site nodule [Recovered/Resolved with Sequelae]
